FAERS Safety Report 8621718-0 (Version None)
Quarter: 2012Q3

REPORT INFORMATION
  Report Type: 
  Country: None (occurrence: None)
  Receive Date: 20120821
  Receipt Date: 20120821
  Transmission Date: 20120928
  Serious: Yes (Hospitalization)
  Sender: FDA-Public Use
  Company Number: None

PATIENT
  Age: 63 Year
  Sex: Female

DRUGS (15)
  1. IRON [Concomitant]
  2. PROCHLORPERAZINE PRN [Concomitant]
  3. VITAMIN D [Concomitant]
  4. NITROGLYCERIN [Concomitant]
  5. PEPCID [Concomitant]
  6. HYDROMORPHONE HCL [Concomitant]
  7. ASA AC [Concomitant]
  8. CALCIUM CARBONATE [Concomitant]
  9. ONDANSETRON [Concomitant]
  10. M.V.I. [Concomitant]
  11. AMLODIPINE [Concomitant]
  12. GABAPENTIN [Concomitant]
  13. ALENDRONATE SODIUM [Concomitant]
  14. ATENOLOL [Concomitant]
  15. CETUXIMAB (ERBITUX) [Suspect]

REACTIONS (5)
  - HYPOMAGNESAEMIA [None]
  - BODY TEMPERATURE INCREASED [None]
  - NECK PAIN [None]
  - ARRHYTHMIA [None]
  - MUSCULOSKELETAL PAIN [None]
